FAERS Safety Report 5948396-3 (Version None)
Quarter: 2008Q4

REPORT INFORMATION
  Report Type: 
  Country: None (occurrence: None)
  Receive Date: 20081110
  Receipt Date: 20081110
  Transmission Date: 20090506
  Serious: Yes (Hospitalization)
  Sender: FDA-Public Use
  Company Number: None

PATIENT
  Sex: Female
  Weight: 61.5078 kg

DRUGS (1)
  1. PROCRIT [Suspect]
     Indication: IRON DEFICIENCY ANAEMIA
     Dosage: 10,000 UNITS WEEKLY SQ, RECEIVED X2
     Route: 058
     Dates: start: 20081010, end: 20081031

REACTIONS (13)
  - BLOOD GLUCOSE DECREASED [None]
  - BLOOD GLUCOSE INCREASED [None]
  - BLOOD PRESSURE INCREASED [None]
  - CEREBROVASCULAR ACCIDENT [None]
  - DEPRESSED LEVEL OF CONSCIOUSNESS [None]
  - DIZZINESS [None]
  - FALL [None]
  - FEELING ABNORMAL [None]
  - HEART RATE IRREGULAR [None]
  - HYPOTENSION [None]
  - LETHARGY [None]
  - PAIN IN EXTREMITY [None]
  - UNRESPONSIVE TO STIMULI [None]
